FAERS Safety Report 14210714 (Version 2)
Quarter: 2018Q1

REPORT INFORMATION
  Report Type: Spontaneous
  Country: US (occurrence: US)
  Receive Date: 20171121
  Receipt Date: 20180125
  Transmission Date: 20180508
  Serious: Yes (Life-Threatening, Hospitalization)
  Sender: FDA-Public Use
  Company Number: US-JNJFOC-20171120209

PATIENT
  Sex: Female
  Weight: 94.8 kg

DRUGS (1)
  1. STELARA [Suspect]
     Active Substance: USTEKINUMAB
     Indication: PSORIASIS
     Route: 058
     Dates: start: 2012, end: 2015

REACTIONS (3)
  - Product use in unapproved indication [Unknown]
  - Cardiac failure congestive [Unknown]
  - Off label use [Unknown]

NARRATIVE: CASE EVENT DATE: 2012
